FAERS Safety Report 9349849 (Version 2)
Quarter: 2013Q3

REPORT INFORMATION
  Report Type: Spontaneous
  Country: US (occurrence: None)
  Receive Date: 20130611
  Receipt Date: 20130729
  Transmission Date: 20140515
  Serious: Yes (Hospitalization)
  Sender: FDA-Public Use
  Company Number: ACO_36608_2013

PATIENT
  Age: 50 Year
  Sex: Female

DRUGS (7)
  1. AMPYRA [Suspect]
     Indication: PRODUCT USED FOR UNKNOWN INDICATION
  2. AMPYRA [Suspect]
     Indication: GAIT DISTURBANCE
  3. AMPYRA [Suspect]
     Indication: MULTIPLE SCLEROSIS
  4. KEPPRA (LEVETIRACETAM) [Concomitant]
  5. GABAPENTIN (GABAPENTIN) [Concomitant]
  6. NITROFURANTOIN [Concomitant]
  7. BACLOFEN (BACLOFEN) [Concomitant]

REACTIONS (1)
  - Pneumonia [None]
